FAERS Safety Report 7249990 (Version 4)
Quarter: 2012Q4

REPORT INFORMATION
  Report Type: 
  Country: US (occurrence: US)
  Receive Date: 20100120
  Receipt Date: 20121213
  Transmission Date: 20130627
  Serious: Yes (Hospitalization)
  Sender: FDA-Public Use
  Company Number: US-BAYER-201011110NA

PATIENT
  Age: 39 Year
  Sex: Female
  Weight: 116.36 kg

DRUGS (4)
  1. YASMIN [Suspect]
     Indication: ORAL CONTRACEPTION
     Route: 048
     Dates: start: 200603, end: 200701
  2. NSAID^S [Concomitant]
     Dates: start: 1995
  3. RANITIDINE [Concomitant]
     Dosage: 150 mg, UNK
     Route: 048
     Dates: start: 20070112
  4. KETOROLAC [Concomitant]
     Dosage: 10 mg, UNK
     Route: 048
     Dates: start: 20070118

REACTIONS (6)
  - Gallbladder disorder [Unknown]
  - Nausea [Unknown]
  - Pain [Unknown]
  - Cholecystitis acute [None]
  - Dyspnoea [Unknown]
  - Oedema peripheral [Unknown]
